FAERS Safety Report 16312181 (Version 2)
Quarter: 2019Q3

REPORT INFORMATION
  Report Type: Spontaneous
  Country: BE (occurrence: BE)
  Receive Date: 20190515
  Receipt Date: 20190717
  Transmission Date: 20191004
  Serious: No
  Sender: FDA-Public Use
  Company Number: BE-TAKEDA-2019TUS028697

PATIENT
  Sex: Male

DRUGS (2)
  1. MEDROL [Concomitant]
     Active Substance: METHYLPREDNISOLONE
     Dosage: UNK
  2. ENTYVIO [Suspect]
     Active Substance: VEDOLIZUMAB
     Indication: COLITIS ULCERATIVE
     Dosage: UNK
     Route: 065
     Dates: start: 20190330

REACTIONS (4)
  - Therapeutic reaction time decreased [Unknown]
  - Off label use [Unknown]
  - Campylobacter infection [Unknown]
  - Colitis ulcerative [Not Recovered/Not Resolved]
